FAERS Safety Report 15196193 (Version 1)
Quarter: 2018Q3

REPORT INFORMATION
  Report Type: Spontaneous
  Country: US (occurrence: US)
  Receive Date: 20180626
  Receipt Date: 20180626
  Transmission Date: 20181010
  Serious: No
  Sender: FDA-Public Use
  Company Number: None

PATIENT
  Sex: Female

DRUGS (1)
  1. OXYBUTYNIN ER [Suspect]
     Active Substance: OXYBUTYNIN

REACTIONS (4)
  - Hypersensitivity [None]
  - Wheezing [None]
  - Headache [None]
  - Feeling abnormal [None]
